FAERS Safety Report 11966348 (Version 1)
Quarter: 2016Q1

REPORT INFORMATION
  Report Type: Spontaneous
  Country: US (occurrence: US)
  Receive Date: 20160127
  Receipt Date: 20160127
  Transmission Date: 20160526
  Serious: No
  Sender: FDA-Public Use
  Company Number: US-ALLERGAN-1519366US

PATIENT
  Sex: Female
  Weight: 92.97 kg

DRUGS (2)
  1. BLEPHAMIDE [Suspect]
     Active Substance: PREDNISOLONE ACETATE\SULFACETAMIDE SODIUM
     Indication: SEASONAL ALLERGY
     Dosage: UNK
     Route: 047
     Dates: start: 2015, end: 2015
  2. FML [Suspect]
     Active Substance: FLUOROMETHOLONE
     Indication: SEASONAL ALLERGY
     Dosage: UNK, BID
     Route: 047
     Dates: start: 2015, end: 201506

REACTIONS (5)
  - Eye irritation [Recovered/Resolved]
  - Off label use [Unknown]
  - Eye pruritus [Recovered/Resolved]
  - Erythema of eyelid [Recovered/Resolved]
  - Lacrimation increased [Recovered/Resolved]

NARRATIVE: CASE EVENT DATE: 2015
